FAERS Safety Report 18397958 (Version 1)
Quarter: 2020Q4

REPORT INFORMATION
  Report Type: Spontaneous
  Country: GB (occurrence: GB)
  Receive Date: 20201019
  Receipt Date: 20201019
  Transmission Date: 20210114
  Serious: Yes (Hospitalization)
  Sender: FDA-Public Use
  Company Number: GB-JNJFOC-20201022051

PATIENT
  Age: 89 Year
  Sex: Female
  Weight: 81.4 kg

DRUGS (4)
  1. RISPERIDONE. [Suspect]
     Active Substance: RISPERIDONE
     Dosage: MORNING AND NIGHT.
     Route: 048
     Dates: start: 20200825, end: 20200908
  2. RISPERIDONE. [Suspect]
     Active Substance: RISPERIDONE
     Indication: PSYCHOTIC SYMPTOM
     Dosage: AT NIGHT.
     Route: 048
     Dates: start: 20200812, end: 20200824
  3. QVAR [Concomitant]
     Active Substance: BECLOMETHASONE DIPROPIONATE
  4. SALBUTAMOL [Concomitant]
     Active Substance: ALBUTEROL
     Dosage: INHALER

REACTIONS (6)
  - Feeling hot [Recovering/Resolving]
  - Skin disorder [Recovering/Resolving]
  - Pain [Unknown]
  - Skin exfoliation [Not Recovered/Not Resolved]
  - Erythema [Not Recovered/Not Resolved]
  - Rash maculo-papular [Recovering/Resolving]

NARRATIVE: CASE EVENT DATE: 20200902
